FAERS Safety Report 8480813-X (Version None)
Quarter: 2012Q3

REPORT INFORMATION
  Report Type: 
  Country: None (occurrence: None)
  Receive Date: 20120702
  Receipt Date: 20120621
  Transmission Date: 20120928
  Serious: Yes (Hospitalization)
  Sender: FDA-Public Use
  Company Number: US-BAYER-2012-018904

PATIENT
  Age: 39 Year
  Sex: Female
  Weight: 67.12 kg

DRUGS (8)
  1. FLUTICASONE PROPIONATE [Concomitant]
     Dosage: 50 MCG USE 2 SPRAYS IN EACH NOSTRIL DAILY
     Route: 045
  2. PSEUDOEPHEDRINE HCL [Concomitant]
     Dosage: 60 MG Q 4-6 HRS AS NEEDED LIMIT 4/DAY
     Route: 048
  3. HYDROCODONE BITARTRATE + ACETAMINOPHEN [Concomitant]
     Indication: PAIN
     Dosage: 1 TABLET ORALLY EVERY 6 5-500 MG
     Route: 048
  4. LEVONORGESTREL [Concomitant]
     Indication: CONTRACEPTION
     Dosage: UNK
     Dates: start: 20081201
  5. YASMIN [Suspect]
     Indication: CONTRACEPTION
     Dosage: UNK
     Dates: start: 20071201, end: 20080501
  6. CYCLOBENZAPRINE [Concomitant]
     Indication: MUSCLE SPASMS
     Dosage: 10 MG, UNK
     Route: 048
     Dates: start: 20090301
  7. INDOMETHACIN [Concomitant]
     Indication: BACK DISORDER
     Dosage: 75 MG, UNK
     Route: 048
     Dates: start: 20090101
  8. LEVORA 0.15/30-21 [Concomitant]
     Dosage: UNK

REACTIONS (2)
  - PAIN [None]
  - CHOLELITHIASIS [None]
